FAERS Safety Report 19452246 (Version 1)
Quarter: 2021Q2

REPORT INFORMATION
  Report Type: Spontaneous
  Country: US (occurrence: US)
  Receive Date: 20210623
  Receipt Date: 20210623
  Transmission Date: 20210717
  Serious: No
  Sender: FDA-Public Use
  Company Number: US-ENCUBE-000087

PATIENT
  Age: 57 Year
  Sex: Male

DRUGS (3)
  1. PERMETHIN CREAM 5% [Suspect]
     Active Substance: PERMETHRIN
     Indication: ACARODERMATITIS
     Dosage: ONE TUBE OF 60 GRAMS WAS APPLIED ON 21 MAY 2021.
     Route: 061
     Dates: start: 20210519
  2. IVERMECTIN. [Concomitant]
     Active Substance: IVERMECTIN
     Indication: ACARODERMATITIS
  3. PERMETHIN CREAM 5% [Suspect]
     Active Substance: PERMETHRIN
     Indication: ACARODERMATITIS
     Dosage: ONE TUBE OF 60 GRAMS WAS APPLIED ON 19 MAY 2021.
     Route: 061
     Dates: start: 20200519

REACTIONS (1)
  - Drug ineffective [Unknown]

NARRATIVE: CASE EVENT DATE: 202105
